FAERS Safety Report 24744003 (Version 1)
Quarter: 2024Q4

REPORT INFORMATION
  Report Type: Report from Study
  Country: JP (occurrence: JP)
  Receive Date: 20241217
  Receipt Date: 20241217
  Transmission Date: 20250114
  Serious: Yes (Death)
  Sender: SHIONOGI
  Company Number: JP-shionogi-202400003890

PATIENT
  Age: 72 Year
  Sex: Male
  Weight: 61 kg

DRUGS (3)
  1. CEFIDEROCOL [Suspect]
     Active Substance: CEFIDEROCOL
     Indication: Haematological infection
     Route: 041
     Dates: start: 20241002, end: 20241013
  2. SULFAMETHOXAZOLE\TRIMETHOPRIM [Suspect]
     Active Substance: SULFAMETHOXAZOLE\TRIMETHOPRIM
     Indication: Product used for unknown indication
     Route: 065
  3. PREDONINE [Suspect]
     Active Substance: PREDNISOLONE
     Indication: Product used for unknown indication
     Dosage: SINCE BEFORE THE START OF FETROJA
     Route: 065
     Dates: end: 20241013

REACTIONS (2)
  - Bacteraemia [Fatal]
  - Hypersensitivity [Unknown]

NARRATIVE: CASE EVENT DATE: 20241004
